FAERS Safety Report 9822107 (Version 2)
Quarter: 2014Q1

REPORT INFORMATION
  Report Type: Spontaneous
  Country: US (occurrence: US)
  Receive Date: 20140116
  Receipt Date: 20140121
  Transmission Date: 20141002
  Serious: Yes (Life-Threatening, Congenital Anomaly, Other)
  Sender: FDA-Public Use
  Company Number: US-PFIZER INC-2014013893

PATIENT
  Age: 7 Week
  Sex: Female

DRUGS (7)
  1. ZOLOFT [Suspect]
     Dosage: UNK
     Route: 064
     Dates: start: 2002
  2. ZANTAC [Concomitant]
     Dosage: 150 MG, UNK
     Route: 064
  3. MULTIVITAMINS [Concomitant]
     Dosage: UNK
     Route: 064
  4. ZYRTEC [Concomitant]
     Dosage: UNK
     Route: 064
  5. ASPIRIN [Concomitant]
     Dosage: UNK
     Route: 064
  6. IBUPROFEN [Concomitant]
     Dosage: UNK
     Route: 064
  7. PSEUDOEPHEDRINE [Concomitant]
     Dosage: UNK
     Route: 064

REACTIONS (3)
  - Maternal exposure during pregnancy [Unknown]
  - Craniosynostosis [Unknown]
  - Extraocular muscle disorder [Unknown]
